FAERS Safety Report 7667161-2 (Version None)
Quarter: 2011Q3

REPORT INFORMATION
  Report Type: 
  Country: None (occurrence: None)
  Receive Date: 20110806
  Receipt Date: 20110427
  Transmission Date: 20111222
  Serious: No
  Sender: FDA-Public Use
  Company Number: US-ABBOTT-11P-163-0721903-00

PATIENT
  Sex: Male
  Weight: 99.88 kg

DRUGS (6)
  1. NIASPAN [Suspect]
     Indication: BLOOD CHOLESTEROL ABNORMAL
     Dosage: AT BEDTIME
     Dates: start: 20100201
  2. UNKNOWN MEDICATION [Concomitant]
     Indication: INFLAMMATION
  3. UNKNOWN MEDICATION [Concomitant]
     Indication: PAIN
  4. UNKNOWN MEDICATION [Concomitant]
     Indication: MUSCLE SPASMS
  5. NIASPAN [Suspect]
     Dates: start: 20110401
  6. ASPIRIN [Concomitant]
     Indication: PRODUCT USED FOR UNKNOWN INDICATION
     Dosage: 30MIN PRIOR TO NIASPAN

REACTIONS (2)
  - PRURITUS [None]
  - SKIN BURNING SENSATION [None]
